FAERS Safety Report 16215585 (Version 1)
Quarter: 2019Q2

REPORT INFORMATION
  Report Type: Spontaneous
  Country: US (occurrence: US)
  Receive Date: 20190314
  Receipt Date: 20190314
  Transmission Date: 20190711
  Serious: No
  Sender: FDA-Public Use
  Company Number: None

PATIENT
  Age: 51 Year
  Sex: Female
  Weight: 55 kg

DRUGS (4)
  1. OXALIPLATIN. [Suspect]
     Active Substance: OXALIPLATIN
  2. FLUOROURACIL. [Suspect]
     Active Substance: FLUOROURACIL
  3. FOLINIC ACID [Suspect]
     Active Substance: LEUCOVORIN
  4. ABRAXANE [Suspect]
     Active Substance: PACLITAXEL

REACTIONS (4)
  - Lipase increased [None]
  - Flank pain [None]
  - Pulmonary embolism [None]
  - Therapy cessation [None]

NARRATIVE: CASE EVENT DATE: 20190215
